FAERS Safety Report 15593552 (Version 2)
Quarter: 2018Q4

REPORT INFORMATION
  Report Type: Spontaneous
  Country: FR (occurrence: FR)
  Receive Date: 20181107
  Receipt Date: 20181116
  Transmission Date: 20190205
  Serious: Yes (Hospitalization, Other)
  Sender: FDA-Public Use
  Company Number: FR-009507513-1810FRA013054

PATIENT
  Age: 63 Year
  Sex: Male

DRUGS (13)
  1. ZEPATIER [Suspect]
     Active Substance: ELBASVIR\GRAZOPREVIR
     Indication: HEPATITIS C
     Dosage: UNK
     Route: 048
     Dates: start: 20150903, end: 20151126
  2. KARDEGIC [Concomitant]
     Active Substance: ASPIRIN DL-LYSINE
     Indication: ANTICOAGULANT THERAPY
     Dosage: 75 MILLIGRAM ONCE PER DAY
     Dates: end: 20170519
  3. CORTANCYL [Concomitant]
     Active Substance: PREDNISONE
     Indication: RENAL FAILURE
     Dosage: 5 MILLIGRAM ONCE PER DAY
  4. APROVEL [Concomitant]
     Active Substance: IRBESARTAN
     Indication: HYPERTENSION
     Dosage: 75 MILLIGRAM ONCE PER DAY
     Dates: end: 2017
  5. AMLOR [Concomitant]
     Active Substance: AMLODIPINE BESYLATE
     Indication: HYPERTENSION
     Dosage: 10 MILLIGRAM ONCE PER DAY
     Dates: end: 2017
  6. ESOMEPRAZOLE. [Concomitant]
     Active Substance: ESOMEPRAZOLE MAGNESIUM
     Indication: GASTROINTESTINAL DISORDER PROPHYLAXIS
     Dosage: UNK
     Dates: end: 2017
  7. COLCHICINE. [Concomitant]
     Active Substance: COLCHICINE
     Indication: PERICARDITIS
     Dosage: 1 MG 0.5 TIME PER DAY
     Dates: start: 2015, end: 20170519
  8. LASILIX [Concomitant]
     Active Substance: FUROSEMIDE
     Indication: RENAL FAILURE
  9. UN ALFA [Concomitant]
     Active Substance: ALFACALCIDOL
     Dosage: 0.75 MILLIGRAM ONCE PER DAY
  10. CALCIUM (UNSPECIFIED) [Concomitant]
     Active Substance: CALCIUM
     Indication: VITAMIN SUPPLEMENTATION
     Dosage: 1000 MILLIGRAM ONCE PER DAY
  11. URAPIDIL [Concomitant]
     Active Substance: URAPIDIL
     Dosage: 30 MILLIGRAM TWICE PER DAY
     Dates: end: 20170519
  12. LASILIX [Concomitant]
     Active Substance: FUROSEMIDE
     Indication: HYPERTENSION
     Dosage: 125 MILLIGRAM ONCE PER DAY
     Dates: end: 2017
  13. XATRAL [Concomitant]
     Active Substance: ALFUZOSIN
     Dosage: 10 MILLIGRAM ONCE PER DAY

REACTIONS (3)
  - Steal syndrome [Unknown]
  - Arterial ligation [Unknown]
  - Ischaemia [Unknown]

NARRATIVE: CASE EVENT DATE: 20170627
